FAERS Safety Report 6818744-0 (Version None)
Quarter: 2010Q2

REPORT INFORMATION
  Report Type: 
  Country: None (occurrence: None)
  Receive Date: 20100630
  Receipt Date: 20100622
  Transmission Date: 20101027
  Serious: Yes (Hospitalization)
  Sender: FDA-Public Use
  Company Number: 008843

PATIENT
  Sex: Male

DRUGS (3)
  1. KEPPRA [Suspect]
     Indication: EPILEPSY
     Dosage: (2 G ORAL)
     Route: 048
     Dates: start: 20080101, end: 20100302
  2. LAMICTAL [Suspect]
     Indication: EPILEPSY
     Dosage: 40 MG ORAL
     Route: 048
     Dates: start: 20100205, end: 20100223
  3. DEPAKIN (DEPAKIN) [Suspect]
     Indication: EPILEPSY
     Dosage: 500 MG BID ORAL
     Route: 048
     Dates: start: 20000101, end: 20100302

REACTIONS (11)
  - ANGIOEDEMA [None]
  - BLOOD POTASSIUM DECREASED [None]
  - CONJUNCTIVAL HYPERAEMIA [None]
  - DISEASE RECURRENCE [None]
  - EPILEPSY [None]
  - HAEMOGLOBIN S DECREASED [None]
  - OEDEMA GENITAL [None]
  - ORAL DISORDER [None]
  - PLATELET COUNT DECREASED [None]
  - RASH PRURITIC [None]
  - THROMBOCYTOPENIA [None]
